FAERS Safety Report 14492501 (Version 2)
Quarter: 2018Q1

REPORT INFORMATION
  Report Type: Spontaneous
  Country: JP (occurrence: JP)
  Receive Date: 20180206
  Receipt Date: 20180221
  Transmission Date: 20180509
  Serious: Yes (Other)
  Sender: FDA-Public Use
  Company Number: JP-TEVA-2018-JP-853329

PATIENT
  Age: 5 Decade
  Sex: Female

DRUGS (6)
  1. BENDAMUSTINE [Suspect]
     Active Substance: BENDAMUSTINE
     Indication: FOLLICULAR DENDRITIC CELL SARCOMA
     Dosage: 120 MG/M2, ON DAYS 1 AND 2 OF THE 21 DAY CYCLE; RECEIVED ONLY ONE CYCLE
     Route: 065
  2. ETOPOSIDE. [Suspect]
     Active Substance: ETOPOSIDE
     Indication: FOLLICULAR DENDRITIC CELL SARCOMA
     Dosage: 4 CYCLES AS A PART OF ESHAP REGIMEN, 80% DOSE REDUCED AFTER 3 CYCLES
     Route: 065
  3. METHYLPREDNISOLONE. [Suspect]
     Active Substance: METHYLPREDNISOLONE
     Indication: FOLLICULAR DENDRITIC CELL SARCOMA
     Dosage: 4 CYCLES AS A PART OF ESHAP REGIMEN, 80% DOSE REDUCED AFTER 3 CYCLES
     Route: 065
  4. PACLITAXEL. [Concomitant]
     Active Substance: PACLITAXEL
     Indication: FOLLICULAR DENDRITIC CELL SARCOMA
     Dosage: FOR 4 MONTHS
  5. CISPLATIN. [Suspect]
     Active Substance: CISPLATIN
     Indication: FOLLICULAR DENDRITIC CELL SARCOMA
     Dosage: 4 CYCLES AS A PART OF ESHAP REGIMEN, 80% DOSE REDUCED AFTER 3 CYCLES
     Route: 065
  6. CYTARABINE. [Suspect]
     Active Substance: CYTARABINE
     Indication: FOLLICULAR DENDRITIC CELL SARCOMA
     Dosage: 4 CYCLES AS A PART OF ESHAP REGIMEN, 80% DOSE REDUCED AFTER 3 CYCLES
     Route: 065

REACTIONS (8)
  - Dehydration [Unknown]
  - Asthenia [Unknown]
  - Nausea [Unknown]
  - Decreased appetite [Unknown]
  - Renal impairment [Unknown]
  - Vomiting [Unknown]
  - Fatigue [Unknown]
  - Diarrhoea [Unknown]
